FAERS Safety Report 15688232 (Version 1)
Quarter: 2018Q4

REPORT INFORMATION
  Report Type: Spontaneous
  Country: US (occurrence: US)
  Receive Date: 20181205
  Receipt Date: 20181205
  Transmission Date: 20190205
  Serious: No
  Sender: FDA-Public Use
  Company Number: US-HIKMA PHARMACEUTICALS USA INC.-US-H14001-17-04738

PATIENT
  Age: 68 Year
  Sex: Male
  Weight: 65.83 kg

DRUGS (1)
  1. IPRATROPIUM BROMID [Suspect]
     Active Substance: IPRATROPIUM BROMIDE
     Indication: SINUS DISORDER
     Dosage: 2 SPRAYS IN EACH NOSTRIL
     Route: 045
     Dates: start: 2013

REACTIONS (3)
  - Nasal congestion [Not Recovered/Not Resolved]
  - Drug ineffective [Unknown]
  - Accidental underdose [Unknown]

NARRATIVE: CASE EVENT DATE: 201711
